FAERS Safety Report 16359385 (Version 3)
Quarter: 2019Q2

REPORT INFORMATION
  Report Type: Report from Study
  Country: None (occurrence: US)
  Receive Date: 20190528
  Receipt Date: 20190621
  Transmission Date: 20190711
  Serious: Yes (Hospitalization, Other)
  Sender: FDA-Public Use
  Company Number: US-ABBVIE-19K-163-2664769-00

PATIENT
  Sex: Female

DRUGS (1)
  1. HUMIRA [Suspect]
     Active Substance: ADALIMUMAB
     Indication: PSORIATIC ARTHROPATHY
     Dosage: CITRATE FREE
     Route: 058

REACTIONS (19)
  - Sepsis [Recovered/Resolved]
  - Bronchitis [Recovered/Resolved]
  - Drug hypersensitivity [Unknown]
  - Stevens-Johnson syndrome [Not Recovered/Not Resolved]
  - Blister [Recovering/Resolving]
  - Pulmonary fibrosis [Recovered/Resolved]
  - Sjogren^s syndrome [Not Recovered/Not Resolved]
  - Pneumonia [Not Recovered/Not Resolved]
  - Squamous cell carcinoma of skin [Recovering/Resolving]
  - Candida infection [Recovered/Resolved]
  - Cystitis [Unknown]
  - Bronchitis chronic [Recovered/Resolved]
  - Pneumonia [Recovered/Resolved]
  - Rash generalised [Not Recovered/Not Resolved]
  - Breast cancer [Recovered/Resolved]
  - Renal pain [Unknown]
  - Endocrine disorder [Unknown]
  - Tremor [Not Recovered/Not Resolved]
  - Injection site pain [Recovering/Resolving]

NARRATIVE: CASE EVENT DATE: 2011
